FAERS Safety Report 24980088 (Version 1)
Quarter: 2025Q1

REPORT INFORMATION
  Report Type: Spontaneous
  Country: US (occurrence: US)
  Receive Date: 20250218
  Receipt Date: 20250218
  Transmission Date: 20250409
  Serious: Yes (Death, Hospitalization, Other)
  Sender: AUROBINDO
  Company Number: US-AUROBINDO-AUR-APL-2025-007899

PATIENT
  Age: 65 Year
  Sex: Female

DRUGS (10)
  1. ETOMIDATE [Suspect]
     Active Substance: ETOMIDATE
     Indication: Hyperadrenocorticism
     Route: 065
  2. FUROSEMIDE [Suspect]
     Active Substance: FUROSEMIDE
     Indication: Nephrotic syndrome
     Route: 042
  3. KETOCONAZOLE [Suspect]
     Active Substance: KETOCONAZOLE
     Indication: Hyperadrenocorticism
     Route: 065
  4. SORAFENIB [Suspect]
     Active Substance: SORAFENIB
     Indication: Medullary thyroid cancer
     Route: 065
  5. CABOZANTINIB [Concomitant]
     Active Substance: CABOZANTINIB
     Indication: Medullary thyroid cancer
     Route: 065
  6. LEVOTHYROXINE [Concomitant]
     Active Substance: LEVOTHYROXINE
     Indication: Hypothyroidism
     Route: 065
  7. METOPROLOL TARTRATE [Concomitant]
     Active Substance: METOPROLOL TARTRATE
     Indication: Product used for unknown indication
     Route: 065
  8. VANCOMYCIN [Concomitant]
     Active Substance: VANCOMYCIN
     Indication: Antibiotic therapy
     Route: 065
  9. MEROPENEM [Concomitant]
     Active Substance: MEROPENEM
     Indication: Antibiotic therapy
     Route: 065
  10. VORICONAZOLE [Concomitant]
     Active Substance: VORICONAZOLE
     Indication: Antibiotic therapy
     Route: 065

REACTIONS (1)
  - Drug ineffective [Fatal]
